FAERS Safety Report 6634240-8 (Version None)
Quarter: 2010Q1

REPORT INFORMATION
  Report Type: 
  Country: None (occurrence: None)
  Receive Date: 20100315
  Receipt Date: 20100302
  Transmission Date: 20100710
  Serious: Yes (Hospitalization, Other)
  Sender: FDA-Public Use
  Company Number: PHEH2010US02669

PATIENT
  Sex: Male
  Weight: 64.5 kg

DRUGS (8)
  1. EXJADE [Suspect]
     Dosage: 125 MG, QD
     Route: 048
     Dates: start: 20090513, end: 20090812
  2. EXJADE [Suspect]
     Dosage: 250 MG, QD
     Route: 048
     Dates: start: 20090812, end: 20100202
  3. METHADONE HYDROCHLORIDE [Concomitant]
     Dosage: 10 MG, QD
     Route: 048
     Dates: start: 20051026
  4. THIAMINE [Concomitant]
     Dosage: 50 MG, QD
     Route: 048
     Dates: start: 20051020
  5. SPIRONOLACTONE [Concomitant]
     Dosage: UNK
     Route: 048
     Dates: end: 20100108
  6. LEVOTHYROXINE [Concomitant]
     Dosage: 0.05 UNK, QD
     Route: 048
     Dates: start: 20060706
  7. MIRTAZAPINE [Concomitant]
     Dosage: 30 MG, QD
  8. FOLIC ACID [Concomitant]
     Dosage: 1 MG, QD
     Route: 048
     Dates: start: 20051026

REACTIONS (16)
  - ALANINE AMINOTRANSFERASE INCREASED [None]
  - ASPARTATE AMINOTRANSFERASE INCREASED [None]
  - BILIRUBIN CONJUGATED INCREASED [None]
  - BLOOD ALBUMIN DECREASED [None]
  - BLOOD BILIRUBIN INCREASED [None]
  - BLOOD GLUCOSE INCREASED [None]
  - BLOOD UREA INCREASED [None]
  - CARBON DIOXIDE DECREASED [None]
  - DECREASED APPETITE [None]
  - FATIGUE [None]
  - GLOMERULAR FILTRATION RATE DECREASED [None]
  - HEPATITIS C [None]
  - JAUNDICE CHOLESTATIC [None]
  - NAUSEA [None]
  - PROTEIN TOTAL INCREASED [None]
  - VOMITING [None]
